FAERS Safety Report 14931392 (Version 2)
Quarter: 2018Q2

REPORT INFORMATION
  Report Type: Spontaneous
  Country: JP (occurrence: JP)
  Receive Date: 20180524
  Receipt Date: 20180629
  Transmission Date: 20180711
  Serious: Yes (Other)
  Sender: FDA-Public Use
  Company Number: JP-AMGEN-JPNSP2018070633

PATIENT
  Age: 27 Year
  Sex: Male

DRUGS (1)
  1. PRALIA [Suspect]
     Active Substance: DENOSUMAB
     Indication: OSTEOPOROSIS
     Dosage: UNK, 1 YEAR
     Route: 042
     Dates: start: 201411

REACTIONS (2)
  - Osteonecrosis of jaw [Unknown]
  - Incorrect route of drug administration [Unknown]
